FAERS Safety Report 16051323 (Version 2)
Quarter: 2019Q1

REPORT INFORMATION
  Report Type: Report from Study
  Country: US (occurrence: US)
  Receive Date: 20190308
  Receipt Date: 20190311
  Transmission Date: 20190418
  Serious: Yes (Other)
  Sender: FDA-Public Use
  Company Number: US-BAYER-2019-046109

PATIENT
  Age: 36 Year
  Sex: Female

DRUGS (2)
  1. MIRENA [Suspect]
     Active Substance: LEVONORGESTREL
     Indication: CONTRACEPTION
  2. MIRENA [Suspect]
     Active Substance: LEVONORGESTREL
     Indication: CONTRACEPTION
     Dosage: UNK
     Dates: start: 20190115, end: 20190226

REACTIONS (4)
  - Drug ineffective [None]
  - Device expulsion [Recovered/Resolved]
  - Pregnancy with contraceptive device [None]
  - Nausea [Recovered/Resolved]

NARRATIVE: CASE EVENT DATE: 2019
